FAERS Safety Report 7913494-1 (Version None)
Quarter: 2011Q4

REPORT INFORMATION
  Report Type: 
  Country: None (occurrence: None)
  Receive Date: 20111110
  Receipt Date: 20111026
  Transmission Date: 20120403
  Serious: Yes (Disabling)
  Sender: FDA-Public Use
  Company Number: 2011AP002290

PATIENT
  Age: 48 Year
  Sex: Female

DRUGS (4)
  1. ACETAMINOPHEN W/ CODEINE [Concomitant]
  2. CITALOPRAM HYDROBROMIDE [Suspect]
     Dosage: 20 MG;PO
     Route: 048
     Dates: start: 20110922
  3. CITALOPRAM HYDROBROMIDE [Suspect]
     Dosage: 20 MG;PO
     Route: 048
     Dates: start: 20110908, end: 20110922
  4. VENTOLIN [Concomitant]

REACTIONS (9)
  - GAIT DISTURBANCE [None]
  - PARAESTHESIA [None]
  - HYPERSENSITIVITY [None]
  - AMNESIA [None]
  - APHASIA [None]
  - TREMOR [None]
  - HYPOAESTHESIA [None]
  - ABDOMINAL PAIN [None]
  - DRY MOUTH [None]
